FAERS Safety Report 4329899-4 (Version None)
Quarter: 2004Q1

REPORT INFORMATION
  Report Type: 
  Country: None (occurrence: None)
  Receive Date: 20040329
  Receipt Date: 20040205
  Transmission Date: 20041129
  Serious: No
  Sender: FDA-Public Use
  Company Number: 03P-163-0239493-00

PATIENT
  Age: 61 Year
  Sex: Female
  Weight: 102.0593 kg

DRUGS (17)
  1. HUMIRA [Suspect]
     Indication: RHEUMATOID ARTHRITIS
     Dosage: 40 MG, 1 IN 2 WK, SUBCUTANEOUS
     Route: 058
     Dates: start: 20030801
  2. OXYCODONE HCL [Concomitant]
  3. DARVOCET [Concomitant]
  4. HYDROCHLOROTHIAZIDE [Concomitant]
  5. IRBESARTAN [Concomitant]
  6. DILTIAZEM [Concomitant]
  7. FERROUS SULFATE TAB [Concomitant]
  8. ANOVLAR [Concomitant]
  9. FEXOFENADINE HYDROCHLORIDE [Concomitant]
  10. ALPRAZOLAM [Concomitant]
  11. RABEPRAZOLE SODIUM [Concomitant]
  12. SERTRALINE HYDROCHLORIDE [Concomitant]
  13. ASCORBIC ACID [Concomitant]
  14. TOCOPHEROL CONCENTRATE CAP [Concomitant]
  15. ZINC [Concomitant]
  16. CELECOXIB [Concomitant]
  17. GAVISCON [Concomitant]

REACTIONS (1)
  - TOOTH ABSCESS [None]
